FAERS Safety Report 6034425-8 (Version None)
Quarter: 2009Q1

REPORT INFORMATION
  Report Type: 
  Country: None (occurrence: None)
  Receive Date: 20090112
  Receipt Date: 20090108
  Transmission Date: 20090719
  Serious: Yes (Death)
  Sender: FDA-Public Use
  Company Number: B0542194A

PATIENT
  Age: 3 Month
  Sex: Female

DRUGS (1)
  1. AUGMENTIN '125' [Suspect]
     Indication: DRUG USE FOR UNKNOWN INDICATION
     Route: 065
     Dates: start: 20080930

REACTIONS (5)
  - PYREXIA [None]
  - RASH [None]
  - RASH MACULAR [None]
  - VIRAL INFECTION [None]
  - VOMITING [None]
